FAERS Safety Report 12750318 (Version 2)
Quarter: 2016Q4

REPORT INFORMATION
  Report Type: Spontaneous
  Country: US (occurrence: US)
  Receive Date: 20160916
  Receipt Date: 20161020
  Transmission Date: 20170207
  Serious: Yes (Other)
  Sender: FDA-Public Use
  Company Number: US-PFIZER INC-2016427380

PATIENT
  Age: 63 Year
  Sex: Male

DRUGS (4)
  1. BACLOFEN. [Concomitant]
     Active Substance: BACLOFEN
     Dosage: 10 MG, UNK
     Dates: start: 20130401, end: 201512
  2. NEURONTIN [Suspect]
     Active Substance: GABAPENTIN
     Indication: PAIN
     Dosage: 300 MG, 4X/DAY (TAPERED DOWN TO 1 CAP THEN NONE)
     Dates: start: 201603, end: 20161002
  3. IBUPROFEN. [Concomitant]
     Active Substance: IBUPROFEN
     Dosage: 1 DF, 2X/DAY
     Dates: start: 20100913
  4. OXYCODONE [Concomitant]
     Active Substance: OXYCODONE
     Dosage: 10 MG, AS NEEDED (4X DAILY)
     Dates: start: 20100913, end: 20161002

REACTIONS (8)
  - Skin odour abnormal [Not Recovered/Not Resolved]
  - Product use issue [Unknown]
  - Weight decreased [Unknown]
  - Abnormal faeces [Not Recovered/Not Resolved]
  - Dysgeusia [Not Recovered/Not Resolved]
  - Breath odour [Not Recovered/Not Resolved]
  - Weight increased [Unknown]
  - Urine odour abnormal [Not Recovered/Not Resolved]

NARRATIVE: CASE EVENT DATE: 201603
